FAERS Safety Report 7277429-X (Version None)
Quarter: 2011Q1

REPORT INFORMATION
  Report Type: 
  Country: None (occurrence: None)
  Receive Date: 20110207
  Receipt Date: 20110126
  Transmission Date: 20110831
  Serious: Yes (Hospitalization)
  Sender: FDA-Public Use
  Company Number: US-NOVOPROD-322273

PATIENT
  Sex: Male

DRUGS (1)
  1. NOVOLOG [Suspect]
     Indication: TYPE 1 DIABETES MELLITUS
     Dosage: UNK
     Route: 058
     Dates: start: 20101001

REACTIONS (6)
  - INFECTION [None]
  - DEHYDRATION [None]
  - DRUG INEFFECTIVE [None]
  - EXPOSURE TO EXTREME TEMPERATURE [None]
  - BLOOD GLUCOSE INCREASED [None]
  - DEVICE FAILURE [None]
